FAERS Safety Report 14781181 (Version 1)
Quarter: 2018Q2

REPORT INFORMATION
  Report Type: Spontaneous
  Country: US (occurrence: US)
  Receive Date: 20180419
  Receipt Date: 20180419
  Transmission Date: 20180711
  Serious: Yes (Hospitalization, Other)
  Sender: FDA-Public Use
  Company Number: US-009507513-1803USA002263

PATIENT
  Age: 58 Year
  Sex: Male
  Weight: 88 kg

DRUGS (4)
  1. TACROLIMUS. [Interacting]
     Active Substance: TACROLIMUS
     Dosage: 2 MG, BID
     Dates: end: 20180131
  2. TACROLIMUS. [Interacting]
     Active Substance: TACROLIMUS
     Dosage: 1 MG, BID
     Dates: start: 20180131
  3. PREVYMIS [Suspect]
     Active Substance: LETERMOVIR
     Indication: CYTOMEGALOVIRUS VIRAEMIA
     Dosage: 480 MG, DAILY
     Route: 048
     Dates: start: 20180123, end: 20180208
  4. PREVYMIS [Interacting]
     Active Substance: LETERMOVIR
     Indication: PROPHYLAXIS

REACTIONS (4)
  - Drug interaction [Unknown]
  - Immunosuppression [Unknown]
  - Immunosuppressant drug level increased [Recovered/Resolved]
  - Cytomegalovirus infection [Not Recovered/Not Resolved]

NARRATIVE: CASE EVENT DATE: 20180123
